FAERS Safety Report 6662972-4 (Version None)
Quarter: 2010Q1

REPORT INFORMATION
  Report Type: 
  Country: None (occurrence: None)
  Receive Date: 20100322
  Receipt Date: 20100309
  Transmission Date: 20100710
  Serious: No
  Sender: FDA-Public Use
  Company Number: 2010-00320

PATIENT
  Age: 39 Year
  Sex: Female
  Weight: 77.1115 kg

DRUGS (4)
  1. ZICAM COLD REMEDY RAPIDMELTS WITH VITAMIN C [Suspect]
     Dosage: Q 4 HRS, 1 DA
     Dates: start: 20100308, end: 20100309
  2. FISH OIL [Concomitant]
  3. MULTI-VITAMIN [Concomitant]
  4. PROBIOTICS [Concomitant]

REACTIONS (1)
  - AGEUSIA [None]
